FAERS Safety Report 8993031 (Version 1)
Quarter: 2013Q1

REPORT INFORMATION
  Report Type: Spontaneous
  Country: CN (occurrence: CN)
  Receive Date: 20130102
  Receipt Date: 20130102
  Transmission Date: 20140127
  Serious: Yes (Other)
  Sender: FDA-Public Use
  Company Number: CN-JNJFOC-20121211829

PATIENT
  Age: 7 Year
  Sex: Male
  Weight: 40 kg

DRUGS (2)
  1. CHILDREN^S MOTRIN [Suspect]
     Route: 048
  2. CHILDREN^S MOTRIN [Suspect]
     Indication: PYREXIA
     Dosage: 10ML
     Route: 048
     Dates: start: 20121222, end: 20121222

REACTIONS (1)
  - Lip oedema [Recovered/Resolved]
